FAERS Safety Report 8504393-5 (Version None)
Quarter: 2012Q3

REPORT INFORMATION
  Report Type: 
  Country: None (occurrence: None)
  Receive Date: 20120711
  Receipt Date: 20120709
  Transmission Date: 20120928
  Serious: No
  Sender: FDA-Public Use
  Company Number: US-PFIZER INC-2012165278

PATIENT
  Sex: Female
  Weight: 127 kg

DRUGS (2)
  1. ALDACTONE [Suspect]
     Indication: SEBACEOUS GLAND DISORDER
     Dosage: 50 MG, 2X/DAY
     Dates: start: 20110101, end: 20120701
  2. LYRICA [Concomitant]
     Indication: NERVE INJURY
     Dosage: UNK, 2X/DAY

REACTIONS (4)
  - FEELING ABNORMAL [None]
  - IRRITABILITY [None]
  - FEELING JITTERY [None]
  - HYPERHIDROSIS [None]
